FAERS Safety Report 4832038-4 (Version None)
Quarter: 2005Q4

REPORT INFORMATION
  Report Type: 
  Country: None (occurrence: None)
  Receive Date: 20051116
  Receipt Date: 20051108
  Transmission Date: 20060501
  Serious: Yes (Hospitalization)
  Sender: FDA-Public Use
  Company Number: TPG2005A00452

PATIENT
  Age: 69 Year
  Sex: Male

DRUGS (7)
  1. PIOGLITAZONE HCL [Suspect]
     Indication: DIABETES MELLITUS
     Dosage: SEE IMAGE
     Route: 048
     Dates: start: 20051006, end: 20051101
  2. PIOGLITAZONE HCL [Suspect]
     Indication: DIABETES MELLITUS
     Dosage: SEE IMAGE
     Route: 048
     Dates: start: 20051105
  3. ATORVASTATIN CALCIUM [Concomitant]
  4. CO-DIOVAN (CO-DIOVAN) [Concomitant]
  5. ALLOPURINOL [Concomitant]
  6. ACETYLSALYCILIC ACID (ACETYLSALICYLIC ACID) [Concomitant]
  7. DICLOFENAC (DICLOFENAC) [Concomitant]

REACTIONS (11)
  - AORTIC ARTERIOSCLEROSIS [None]
  - AORTIC VALVE INCOMPETENCE [None]
  - CARDIAC VENTRICULAR DISORDER [None]
  - COORDINATION ABNORMAL [None]
  - DIZZINESS [None]
  - MITRAL VALVE INCOMPETENCE [None]
  - NAUSEA [None]
  - VERTIGO [None]
  - VESTIBULAR DISORDER [None]
  - VISION BLURRED [None]
  - VOMITING [None]
